FAERS Safety Report 5074804-9 (Version None)
Quarter: 2006Q3

REPORT INFORMATION
  Report Type: 
  Country: None (occurrence: None)
  Receive Date: 20060804
  Receipt Date: 20060727
  Transmission Date: 20061208
  Serious: Yes (Disabling, Other)
  Sender: FDA-Public Use
  Company Number: 200104023

PATIENT
  Age: 52 Year
  Sex: Female
  Weight: 47.7 kg

DRUGS (2)
  1. BOTOX [Suspect]
     Indication: DYSTONIA
     Dosage: PRN, INTRAMUSCULAR
     Route: 030
  2. ARTANE [Concomitant]

REACTIONS (6)
  - BACK INJURY [None]
  - BLOOD COUNT ABNORMAL [None]
  - FATIGUE [None]
  - GAIT DISTURBANCE [None]
  - MONOPLEGIA [None]
  - MUSCULOSKELETAL STIFFNESS [None]
